FAERS Safety Report 18495501 (Version 1)
Quarter: 2020Q4

REPORT INFORMATION
  Report Type: Report from Study
  Country: NL (occurrence: NL)
  Receive Date: 20201112
  Receipt Date: 20201112
  Transmission Date: 20210114
  Serious: Yes (Other)
  Sender: FDA-Public Use
  Company Number: NL-MYLANLABS-2020M1092047

PATIENT
  Age: 34 Year
  Sex: Female
  Weight: 94 kg

DRUGS (3)
  1. GLATIRAMEERACETAAT MYLAN 40 MG/ML [Suspect]
     Active Substance: GLATIRAMER ACETATE
     Indication: MULTIPLE SCLEROSIS
     Dosage: 40 MILLIGRAM, 3XW
     Route: 058
     Dates: start: 20190411, end: 2020
  2. COLECALCIFEROL [Concomitant]
     Active Substance: CHOLECALCIFEROL
     Dosage: 2 DOSAGE FORM, MONTHLY
     Route: 048
  3. ETHINYLESTRADIOL W/LEVONORGESTREL [Concomitant]
     Active Substance: ETHINYL ESTRADIOL\LEVONORGESTREL
     Dosage: 1 DOSAGE FORM, QD
     Route: 048

REACTIONS (2)
  - Drug ineffective [Not Recovered/Not Resolved]
  - Multiple sclerosis [Unknown]
